FAERS Safety Report 5659389-8 (Version None)
Quarter: 2008Q1

REPORT INFORMATION
  Report Type: 
  Country: None (occurrence: None)
  Receive Date: 20080311
  Receipt Date: 20080305
  Transmission Date: 20080703
  Serious: Yes (Other)
  Sender: FDA-Public Use
  Company Number: DE-BRISTOL-MYERS SQUIBB COMPANY-13892310

PATIENT
  Age: 39 Year
  Sex: Female

DRUGS (1)
  1. ABILIFY [Suspect]
     Indication: SCHIZOPHRENIA
     Dosage: 5MG/DAY ON 21JUN06;10MG/DAY ON 27JUN06;15MG/DAY ON 5JUL06;20MG/DAY ON 17JUL06;30MG/DAY ON 21SEP06.
     Dates: start: 20060621

REACTIONS (2)
  - PREGNANCY [None]
  - PREMATURE BABY [None]
